FAERS Safety Report 16404208 (Version 1)
Quarter: 2019Q2

REPORT INFORMATION
  Report Type: Spontaneous
  Country: CN (occurrence: CN)
  Receive Date: 20190607
  Receipt Date: 20190607
  Transmission Date: 20190711
  Serious: Yes (Death, Hospitalization, Other)
  Sender: FDA-Public Use
  Company Number: CN-JNJFOC-20190526231

PATIENT
  Age: 78 Year

DRUGS (3)
  1. CLOPIDOGREL [Interacting]
     Active Substance: CLOPIDOGREL BISULFATE
     Indication: PRODUCT USED FOR UNKNOWN INDICATION
     Route: 065
  2. BAYASPIRIN [Interacting]
     Active Substance: ASPIRIN
     Indication: DEEP VEIN THROMBOSIS
     Route: 065
  3. XARELTO [Suspect]
     Active Substance: RIVAROXABAN
     Indication: DEEP VEIN THROMBOSIS
     Route: 048
     Dates: start: 20180715, end: 201807

REACTIONS (8)
  - Cerebral infarction [Unknown]
  - Labelled drug-drug interaction medication error [Unknown]
  - Contraindicated product administered [Unknown]
  - Off label use [Unknown]
  - Labelled drug-drug interaction medication error [Unknown]
  - Cerebral haemorrhage [Fatal]
  - Cerebral thrombosis [Unknown]
  - Product use in unapproved indication [Unknown]

NARRATIVE: CASE EVENT DATE: 201806
